FAERS Safety Report 11945055 (Version 1)
Quarter: 2016Q1

REPORT INFORMATION
  Report Type: Spontaneous
  Country: SE (occurrence: SE)
  Receive Date: 20160125
  Receipt Date: 20160125
  Transmission Date: 20160526
  Serious: Yes (Other)
  Sender: FDA-Public Use
  Company Number: SE-PFIZER INC-2016016200

PATIENT
  Age: 37 Year
  Sex: Female
  Weight: 69 kg

DRUGS (6)
  1. PRONAXEN [Concomitant]
     Active Substance: NAPROXEN
  2. PARAFLEX [Concomitant]
     Active Substance: CHLORZOXAZONE
  3. DOLCONTIN [Concomitant]
     Active Substance: MORPHINE
  4. MOVICOLON [Concomitant]
     Active Substance: POLYETHYLENE GLYCOL 3350\POTASSIUM CHLORIDE\SODIUM BICARBONATE\SODIUM CHLORIDE
  5. LYRICA [Suspect]
     Active Substance: PREGABALIN
     Indication: INTERVERTEBRAL DISC PROTRUSION
     Dosage: 150 MG, 3X/DAY
     Dates: start: 201509, end: 20151014
  6. CILAXORAL [Concomitant]

REACTIONS (3)
  - Skin ulcer haemorrhage [Recovering/Resolving]
  - Wound infection [Recovering/Resolving]
  - Wound complication [Recovering/Resolving]

NARRATIVE: CASE EVENT DATE: 201509
